FAERS Safety Report 17873144 (Version 2)
Quarter: 2020Q2

REPORT INFORMATION
  Report Type: Spontaneous
  Country: US (occurrence: US)
  Receive Date: 20200608
  Receipt Date: 20200612
  Transmission Date: 20200714
  Serious: Yes (Death, Other)
  Sender: FDA-Public Use
  Company Number: US-GILEAD-2020-0470616

PATIENT
  Age: 71 Year
  Sex: Female
  Weight: 122 kg

DRUGS (2)
  1. RIVAROXABAN [Concomitant]
     Active Substance: RIVAROXABAN
     Dosage: UNK
     Dates: end: 20200601
  2. REMDESIVIR. [Suspect]
     Active Substance: REMDESIVIR
     Indication: COVID-19
     Dosage: 100 MG, QD
     Route: 042
     Dates: start: 20200529, end: 20200601

REACTIONS (6)
  - Cardiac arrest [Fatal]
  - Epistaxis [Not Recovered/Not Resolved]
  - Pulseless electrical activity [Fatal]
  - Bradycardia [Fatal]
  - Respiratory arrest [Fatal]
  - Hypotension [Fatal]

NARRATIVE: CASE EVENT DATE: 20200602
